FAERS Safety Report 9143464 (Version 1)
Quarter: 2013Q1

REPORT INFORMATION
  Report Type: Spontaneous
  Country: FR (occurrence: FR)
  Receive Date: 20130306
  Receipt Date: 20130306
  Transmission Date: 20140127
  Serious: Yes (Other)
  Sender: FDA-Public Use
  Company Number: FR-ASTRAZENECA-2013SE13776

PATIENT
  Age: 57 Year
  Sex: Female

DRUGS (1)
  1. XEROQUEL [Suspect]
     Indication: DEPRESSION
     Route: 048
     Dates: start: 201210

REACTIONS (2)
  - Eating disorder [Unknown]
  - Weight increased [Not Recovered/Not Resolved]
